FAERS Safety Report 6557767-6 (Version None)
Quarter: 2010Q1

REPORT INFORMATION
  Report Type: 
  Country: None (occurrence: None)
  Receive Date: 20100129
  Receipt Date: 20100121
  Transmission Date: 20100710
  Serious: Yes (Hospitalization, Other)
  Sender: FDA-Public Use
  Company Number: US-ASTRAZENECA-2010SE02973

PATIENT
  Sex: Female

DRUGS (5)
  1. SEROQUEL [Suspect]
     Indication: DEPRESSION
     Route: 048
     Dates: start: 20030101
  2. SEROQUEL [Suspect]
     Route: 048
  3. SEROQUEL [Suspect]
     Route: 048
  4. SEROQUEL [Suspect]
     Dosage: QID: 25 MG IN AM, NOON, 5 PM AND 100 MG; TOTAL DAILY DOSE: 175 MG
     Route: 048
     Dates: end: 20050101
  5. CYMBALTA [Concomitant]

REACTIONS (6)
  - ILL-DEFINED DISORDER [None]
  - PAIN IN EXTREMITY [None]
  - PROCTALGIA [None]
  - SOMNOLENCE [None]
  - SPEECH DISORDER [None]
  - SUICIDAL IDEATION [None]
